FAERS Safety Report 13307442 (Version 2)
Quarter: 2017Q2

REPORT INFORMATION
  Report Type: Report from Study
  Country: RU (occurrence: RU)
  Receive Date: 20170308
  Receipt Date: 20170413
  Transmission Date: 20170830
  Serious: Yes (Hospitalization)
  Sender: FDA-Public Use
  Company Number: RU-TEVA-744161ISR

PATIENT
  Age: 55 Year
  Sex: Female
  Weight: 60 kg

DRUGS (6)
  1. FOLIC ACID. [Concomitant]
     Active Substance: FOLIC ACID
     Dates: start: 2013, end: 20161228
  2. METHYLPREDNISOLONE. [Concomitant]
     Active Substance: METHYLPREDNISOLONE
     Indication: RHEUMATOID ARTHRITIS
     Dates: start: 201304
  3. ATENOLOL. [Concomitant]
     Active Substance: ATENOLOL
     Indication: HYPERTENSION
     Dates: start: 2011
  4. METHOTREXATE. [Suspect]
     Active Substance: METHOTREXATE
     Indication: RHEUMATOID ARTHRITIS
     Route: 048
     Dates: start: 201510, end: 20161228
  5. ACECLOFENAC [Concomitant]
     Active Substance: ACECLOFENAC
     Indication: RHEUMATOID ARTHRITIS
     Dates: start: 201304
  6. PF-06410293 [Suspect]
     Active Substance: INVESTIGATIONAL BIOSIMILARS
     Indication: RHEUMATOID ARTHRITIS
     Route: 058
     Dates: start: 20160209, end: 20170110

REACTIONS (4)
  - Ear infection [Recovered/Resolved]
  - Condition aggravated [Recovered/Resolved]
  - Rheumatoid arthritis [Recovered/Resolved]
  - Paranasal cyst [Recovered/Resolved]

NARRATIVE: CASE EVENT DATE: 20161228
